FAERS Safety Report 13540963 (Version 1)
Quarter: 2017Q2

REPORT INFORMATION
  Report Type: Spontaneous
  Country: DE (occurrence: DE)
  Receive Date: 20170512
  Receipt Date: 20170512
  Transmission Date: 20170830
  Serious: Yes (Hospitalization)
  Sender: FDA-Public Use
  Company Number: DE-UCBSA-2017017855

PATIENT
  Age: 61 Year
  Sex: Male
  Weight: 85 kg

DRUGS (5)
  1. LAMOTRIGINE. [Suspect]
     Active Substance: LAMOTRIGINE
     Indication: PRODUCT USED FOR UNKNOWN INDICATION
     Dosage: 150 MG, TOTAL; UNKNOWN QUANTITY/ MIX-UP
     Dates: start: 20170507, end: 20170507
  2. METHIONIN [Suspect]
     Active Substance: METHIONINE
     Indication: PRODUCT USED FOR UNKNOWN INDICATION
     Dosage: 1000 MG, TOTAL; 2 TABLETS / MIX-UP (STRENGTH: 500 MG)
     Dates: start: 20170507, end: 20170507
  3. BACLOFEN. [Suspect]
     Active Substance: BACLOFEN
     Indication: PRODUCT USED FOR UNKNOWN INDICATION
     Dosage: 5 MG, TOTAL (1 TABLET / MIX-UP); STRENGTH: 5 MG
     Dates: start: 20170507, end: 20170507
  4. KEPPRA [Suspect]
     Active Substance: LEVETIRACETAM
     Indication: PRODUCT USED FOR UNKNOWN INDICATION
     Dosage: 750 MG, TOTAL; 1 TABLET/MIX-UP (STRENGTH: 750 MG
     Dates: start: 20170507, end: 20170507
  5. ERGENYL [Suspect]
     Active Substance: VALPROIC ACID
     Indication: PRODUCT USED FOR UNKNOWN INDICATION
     Dosage: 750 MG, TOTAL; UNKNOWN QUANTITY/ MIX-UP
     Dates: start: 20170507, end: 20170507

REACTIONS (2)
  - Medication error [Unknown]
  - Wrong drug administered [Unknown]

NARRATIVE: CASE EVENT DATE: 20170507
